FAERS Safety Report 6257769-3 (Version None)
Quarter: 2009Q3

REPORT INFORMATION
  Report Type: 
  Country: None (occurrence: None)
  Receive Date: 20090706
  Receipt Date: 20090622
  Transmission Date: 20100115
  Serious: Yes (Hospitalization, Other)
  Sender: FDA-Public Use
  Company Number: FR-ROCHE-632449

PATIENT
  Age: 47 Year
  Sex: Male
  Weight: 65 kg

DRUGS (6)
  1. PEGASYS [Suspect]
     Indication: HEPATITIS C
     Route: 058
     Dates: start: 20081211
  2. RIBAVIRIN [Suspect]
     Indication: HEPATITIS C
     Route: 065
     Dates: start: 20081211
  3. FUZEON [Concomitant]
  4. TRUVADA [Concomitant]
  5. ISENTRESS [Concomitant]
     Dosage: DRUG REPORTED AS: ISENTREX.
  6. ETRAVIRINE [Concomitant]
     Dosage: DRUG REPORTED AS: INTELENCE.

REACTIONS (5)
  - FALL [None]
  - FRACTURE DISPLACEMENT [None]
  - HUMERUS FRACTURE [None]
  - IMPAIRED HEALING [None]
  - JOINT DISLOCATION [None]
